FAERS Safety Report 6968501-X (Version None)
Quarter: 2010Q3

REPORT INFORMATION
  Report Type: 
  Country: None (occurrence: None)
  Receive Date: 20100907
  Receipt Date: 20100831
  Transmission Date: 20110219
  Serious: Yes (Death)
  Sender: FDA-Public Use
  Company Number: US-ROCHE-724937

PATIENT
  Sex: Male

DRUGS (2)
  1. AVASTIN [Suspect]
     Dosage: DOSE, FORM, ROUTE AND FREQUENCY NOT PROVIDED.
     Route: 065
  2. TARCEVA [Suspect]
     Dosage: DOSE, FORM, ROUTE AND FREQUENCY NOT PROVIDED.
     Route: 065

REACTIONS (1)
  - LUNG NEOPLASM MALIGNANT [None]
